FAERS Safety Report 9508436 (Version 1)
Quarter: 2013Q1

REPORT INFORMATION
  Report Type: Spontaneous
  Country: US (occurrence: None)
  Receive Date: 20130305
  Receipt Date: 20130305
  Transmission Date: 20140127
  Serious: Yes (Other)
  Sender: FDA-Public Use
  Company Number: 163-21880-12082555

PATIENT
  Age: 81 Year
  Sex: Female

DRUGS (1)
  1. REVLIMID [Suspect]
     Indication: PLASMA CELL MYELOMA
     Dosage: 5 MG, M, W, F X 28 DAYS, PO
     Dates: start: 20111229

REACTIONS (5)
  - Neuropathy peripheral [None]
  - Muscle spasms [None]
  - Pneumonia [None]
  - Pyrexia [None]
  - White blood cell count decreased [None]
